FAERS Safety Report 18663847 (Version 2)
Quarter: 2020Q4

REPORT INFORMATION
  Report Type: Spontaneous
  Country: BR (occurrence: BR)
  Receive Date: 20201225
  Receipt Date: 20201226
  Transmission Date: 20210114
  Serious: Yes (Other)
  Sender: FDA-Public Use
  Company Number: BR-AMGEN-BRASP2020208666

PATIENT
  Age: 73 Year
  Sex: Female
  Weight: 37 kg

DRUGS (3)
  1. ENBREL [Suspect]
     Active Substance: ETANERCEPT
     Indication: RHEUMATOID ARTHRITIS
     Dosage: UNK
     Route: 065
     Dates: start: 2010
  2. PREDSIN [DEXAMETHASONE;PREDNISOLONE] [Concomitant]
     Dosage: UNK
     Dates: start: 2010
  3. RIVOTRIL [Concomitant]
     Active Substance: CLONAZEPAM
     Dosage: UNK
     Dates: start: 202003

REACTIONS (15)
  - Injury [Recovered/Resolved]
  - Vision blurred [Not Recovered/Not Resolved]
  - Skin discolouration [Recovered/Resolved]
  - Skin haemorrhage [Recovered/Resolved]
  - Bone disorder [Not Recovered/Not Resolved]
  - Weight increased [Unknown]
  - Herpes ophthalmic [Not Recovered/Not Resolved]
  - Cataract [Not Recovered/Not Resolved]
  - Fall [Recovered/Resolved]
  - Finger deformity [Not Recovered/Not Resolved]
  - Herpes virus infection [Not Recovered/Not Resolved]
  - Limb mass [Not Recovered/Not Resolved]
  - Paraesthesia [Not Recovered/Not Resolved]
  - Pain [Unknown]
  - Spinal fracture [Not Recovered/Not Resolved]

NARRATIVE: CASE EVENT DATE: 2018
